FAERS Safety Report 8078626-6 (Version None)
Quarter: 2012Q1

REPORT INFORMATION
  Report Type: 
  Country: None (occurrence: None)
  Receive Date: 20120127
  Receipt Date: 20110103
  Transmission Date: 20120608
  Serious: No
  Sender: FDA-Public Use
  Company Number: US-ABBOTT-11P-163-0695105-00

PATIENT
  Sex: Male
  Weight: 72.64 kg

DRUGS (2)
  1. HUMIRA [Suspect]
     Indication: ANKYLOSING SPONDYLITIS
     Dates: start: 20100501, end: 20101213
  2. INDOCIN [Concomitant]
     Indication: ANKYLOSING SPONDYLITIS

REACTIONS (6)
  - INCORRECT DRUG ADMINISTRATION DURATION [None]
  - ANKYLOSING SPONDYLITIS [None]
  - ARTHRITIS [None]
  - MUSCULOSKELETAL STIFFNESS [None]
  - LARYNGITIS [None]
  - JOINT STIFFNESS [None]
